FAERS Safety Report 16573011 (Version 1)
Quarter: 2019Q3

REPORT INFORMATION
  Report Type: Other
  Country: GB (occurrence: GB)
  Receive Date: 20190715
  Receipt Date: 20190715
  Transmission Date: 20191004
  Serious: Yes (Other)
  Sender: FDA-Public Use
  Company Number: GB-HERITAGE PHARMACEUTICALS-2019HTG00318

PATIENT
  Age: 48 Year
  Sex: Female

DRUGS (3)
  1. COCODAMOL [Concomitant]
     Active Substance: ACETAMINOPHEN\CODEINE PHOSPHATE
     Dosage: ^1 OR 2^, 4X/DAY
     Dates: start: 20180910
  2. FLUOXETINE [Suspect]
     Active Substance: FLUOXETINE HYDROCHLORIDE
     Dosage: 40 MG, 1X/DAY
     Dates: start: 20190529
  3. AMITRIPTYLINE HYDROCHLORIDE. [Concomitant]
     Active Substance: AMITRIPTYLINE HYDROCHLORIDE
     Dosage: 2 DOSAGE UNITS, 1X/DAY AT NIGHT
     Dates: start: 20180910

REACTIONS (2)
  - Urticaria [Recovering/Resolving]
  - Circumoral oedema [Recovering/Resolving]

NARRATIVE: CASE EVENT DATE: 2019
